FAERS Safety Report 8489201-3 (Version None)
Quarter: 2012Q3

REPORT INFORMATION
  Report Type: 
  Country: None (occurrence: None)
  Receive Date: 20120705
  Receipt Date: 20120629
  Transmission Date: 20120928
  Serious: Yes (Other)
  Sender: FDA-Public Use
  Company Number: JP-PFIZER INC-2012098777

PATIENT
  Age: 75 Year
  Sex: Female
  Weight: 49 kg

DRUGS (15)
  1. MORPHINE [Concomitant]
     Dosage: UNK
  2. SEDIEL [Concomitant]
     Indication: ANXIETY
     Dosage: 10 MG, 2X/DAY
     Route: 048
     Dates: start: 20111115
  3. MAGMITT [Concomitant]
     Indication: CONSTIPATION
     Dosage: 330 MG, 3X/DAY
     Route: 048
     Dates: start: 20120111
  4. REFLEX, UNSPECIFIED [Concomitant]
     Indication: DEPRESSION
     Dosage: 15 MG, 1X/DAY
     Route: 048
     Dates: start: 20120110
  5. RANTAC [Concomitant]
     Indication: PROPHYLAXIS AGAINST GASTROINTESTINAL ULCER
     Dosage: 150 MG, 2X/DAY
     Route: 048
     Dates: start: 20111115
  6. WARFARIN POTASSIUM [Concomitant]
     Indication: THROMBOSIS PROPHYLAXIS
     Dosage: 0.5 MG, 1X/DAY
     Route: 048
     Dates: start: 20120106
  7. LYRICA [Suspect]
     Indication: NEURALGIA
     Dosage: 50 MG, 2X/DAY
     Route: 048
     Dates: start: 20120413, end: 20120415
  8. VOLTAREN [Concomitant]
     Indication: PAIN
     Dosage: 2.5 MG, 1X/DAY
     Route: 054
     Dates: start: 20111028
  9. LYRICA [Suspect]
     Dosage: 50 MG, 1X/DAY AT EVENING
     Route: 048
     Dates: start: 20120401, end: 20120420
  10. AMOBAN [Concomitant]
     Indication: INSOMNIA
     Dosage: 7.5 MG, 1X/DAY
     Route: 048
     Dates: start: 20120103
  11. ACETAMINOPHEN [Concomitant]
     Indication: PAIN
     Dosage: 600 MG, 3X/DAY
     Route: 048
     Dates: start: 20111031
  12. WARFARIN [Concomitant]
     Indication: THROMBOSIS PROPHYLAXIS
     Dosage: 1 MG, 1X/DAY
     Route: 048
  13. PROCHLORPERAZINE [Concomitant]
     Indication: VOMITING
     Dosage: 5 MG, 3X/DAY
     Route: 048
     Dates: start: 20111119
  14. LYRICA [Suspect]
     Dosage: 25MG AT MORNING AND 50MG AT EVENING
     Route: 048
     Dates: start: 20120416, end: 20120401
  15. HALOPERIDOL [Concomitant]
     Dosage: UNK

REACTIONS (2)
  - ANGIOEDEMA [None]
  - SOMNOLENCE [None]
